FAERS Safety Report 15320183 (Version 1)
Quarter: 2018Q3

REPORT INFORMATION
  Report Type: Spontaneous
  Country: US (occurrence: US)
  Receive Date: 20180827
  Receipt Date: 20180827
  Transmission Date: 20181010
  Serious: No
  Sender: FDA-Public Use
  Company Number: US-PFIZER INC-2018342337

PATIENT
  Sex: Female

DRUGS (2)
  1. ASPIRIN [ACETYLSALICYLIC ACID] [Concomitant]
     Active Substance: ASPIRIN
  2. ADVIL [Suspect]
     Active Substance: IBUPROFEN
     Dosage: 1 DF, UNK

REACTIONS (7)
  - Back pain [Unknown]
  - Urticaria [Unknown]
  - Rash [Recovered/Resolved]
  - Erythema [Unknown]
  - Blister [Unknown]
  - Drug ineffective [Unknown]
  - Drug administration error [Unknown]
